FAERS Safety Report 4607687-9 (Version None)
Quarter: 2005Q1

REPORT INFORMATION
  Report Type: 
  Country: None (occurrence: None)
  Receive Date: 20050309
  Receipt Date: 20050222
  Transmission Date: 20050727
  Serious: Yes (Hospitalization)
  Sender: FDA-Public Use
  Company Number: US_0502113386

PATIENT
  Age: 74 Year
  Sex: Female
  Weight: 53 kg

DRUGS (6)
  1. FORTEO [Suspect]
     Indication: OSTEOPOROSIS
     Dosage: 20 UG DAY
     Dates: start: 20041101
  2. CALCIUM GLUCONATE [Concomitant]
  3. PANTOPRAZOLE [Concomitant]
  4. GLUCOSAMINE SULFATE [Concomitant]
  5. ZITHROMAX [Concomitant]
  6. SIMVASTATIN ^ORIFARM^ (SIMVASTATIN RATIOPHARM) [Concomitant]

REACTIONS (3)
  - ARTHRITIS INFECTIVE [None]
  - SKIN LESION [None]
  - WOUND INFECTION [None]
